FAERS Safety Report 13609842 (Version 3)
Quarter: 2017Q3

REPORT INFORMATION
  Report Type: Spontaneous
  Country: JP (occurrence: JP)
  Receive Date: 20170602
  Receipt Date: 20170803
  Transmission Date: 20171127
  Serious: Yes (Death, Hospitalization, Other)
  Sender: FDA-Public Use
  Company Number: JP-AMGEN-JPNSP2017083696

PATIENT
  Age: 68 Year
  Sex: Female

DRUGS (11)
  1. KYPROLIS [Suspect]
     Active Substance: CARFILZOMIB
     Dosage: 56 MG/M2, UNK
     Route: 041
     Dates: start: 20170530, end: 20170531
  2. KYPROLIS [Suspect]
     Active Substance: CARFILZOMIB
     Dosage: 27 MG/M2, UNK
     Route: 041
     Dates: end: 20170216
  3. EMPLICITI [Suspect]
     Active Substance: ELOTUZUMAB
     Indication: PRODUCT USED FOR UNKNOWN INDICATION
     Dosage: UNK
     Route: 065
  4. KYPROLIS [Suspect]
     Active Substance: CARFILZOMIB
     Dosage: 56 MG/M2, UNK
     Route: 041
     Dates: start: 20170606, end: 20170607
  5. BARACLUDE [Concomitant]
     Active Substance: ENTECAVIR
     Dosage: UNK
  6. KYPROLIS [Suspect]
     Active Substance: CARFILZOMIB
     Indication: PLASMA CELL MYELOMA
     Dosage: 27 MG/M2, UNK
     Route: 041
     Dates: start: 20170118
  7. DEXAMETHASONE. [Suspect]
     Active Substance: DEXAMETHASONE
     Indication: PLASMA CELL MYELOMA
     Dosage: 20 MG, UNK
     Route: 065
  8. DENOSINE [Concomitant]
     Active Substance: GANCICLOVIR
     Dosage: UNK
  9. KYPROLIS [Suspect]
     Active Substance: CARFILZOMIB
     Dosage: 56 MG/M2, UNK
     Route: 041
     Dates: start: 20170523, end: 20170524
  10. REVLIMID [Suspect]
     Active Substance: LENALIDOMIDE
     Indication: PLASMA CELL MYELOMA
     Dosage: UNK
     Route: 048
  11. ACICLOVIR [Concomitant]
     Active Substance: ACYCLOVIR
     Dosage: UNK

REACTIONS (3)
  - Febrile neutropenia [Not Recovered/Not Resolved]
  - Cardiac disorder [Unknown]
  - Interstitial lung disease [Fatal]

NARRATIVE: CASE EVENT DATE: 20170525
